FAERS Safety Report 14371534 (Version 1)
Quarter: 2018Q1

REPORT INFORMATION
  Report Type: Spontaneous
  Country: US (occurrence: US)
  Receive Date: 20180110
  Receipt Date: 20180110
  Transmission Date: 20180509
  Serious: Yes (Hospitalization)
  Sender: FDA-Public Use
  Company Number: US-VALIDUS PHARMACEUTICALS LLC-US-2018VAL000042

PATIENT
  Age: 54 Year
  Sex: Female

DRUGS (1)
  1. CARBAMAZEPINE. [Suspect]
     Active Substance: CARBAMAZEPINE
     Indication: BIPOLAR DISORDER
     Dosage: UNK

REACTIONS (5)
  - Electroencephalogram abnormal [Recovered/Resolved]
  - Overdose [Recovered/Resolved]
  - Areflexia [Recovered/Resolved]
  - Toxicity to various agents [Recovered/Resolved]
  - Echopraxia [Recovered/Resolved]
